FAERS Safety Report 18401835 (Version 4)
Quarter: 2020Q4

REPORT INFORMATION
  Report Type: Report from Study
  Country: FR (occurrence: FR)
  Receive Date: 20201019
  Receipt Date: 20201102
  Transmission Date: 20210114
  Serious: Yes (Life-Threatening, Hospitalization, Other)
  Sender: FDA-Public Use
  Company Number: FR-GILEAD-2018-0379905

PATIENT
  Age: 66 Year
  Sex: Male

DRUGS (22)
  1. CYTARABINE. [Concomitant]
     Active Substance: CYTARABINE
     Dosage: UNK, ONCE
     Route: 037
     Dates: start: 20181030, end: 20181030
  2. LYRICA [Concomitant]
     Active Substance: PREGABALIN
     Dosage: UNK
     Dates: start: 2017
  3. KTE-X19 [Suspect]
     Active Substance: AXICABTAGENE CILOLEUCEL
     Indication: ACUTE LYMPHOCYTIC LEUKAEMIA
     Dosage: 68 ML, ONCE
     Route: 042
     Dates: start: 20181204, end: 20181204
  4. METHOTREXATE. [Concomitant]
     Active Substance: METHOTREXATE
     Dosage: UNK, ONCE
     Route: 037
     Dates: start: 20181120, end: 20181120
  5. XANAX [Concomitant]
     Active Substance: ALPRAZOLAM
     Dosage: UNK
     Dates: start: 2013
  6. BACTRIM [Concomitant]
     Active Substance: SULFAMETHOXAZOLE\TRIMETHOPRIM
     Dosage: UNK
     Dates: start: 2017
  7. METHOTREXATE. [Concomitant]
     Active Substance: METHOTREXATE
     Indication: PROPHYLAXIS
     Dosage: UNK, ONCE
     Route: 037
     Dates: start: 20181030, end: 20181030
  8. METHYLPREDNISOLONE. [Concomitant]
     Active Substance: METHYLPREDNISOLONE
     Dosage: UNK, ONCE
     Route: 037
     Dates: start: 20181120, end: 20181120
  9. PRIMPERAN [Concomitant]
     Active Substance: METOCLOPRAMIDE HYDROCHLORIDE
     Dosage: UNK
     Dates: start: 2017
  10. FOLINORAL [Concomitant]
     Active Substance: LEUCOVORIN CALCIUM
     Dosage: UNK
     Dates: start: 2017
  11. DEXAMETHASONE. [Concomitant]
     Active Substance: DEXAMETHASONE
     Indication: CHEMOTHERAPY
     Dosage: DAILY MONDAY AND TUESDAY DURING 2 WEEKS
     Route: 048
     Dates: start: 20181025
  12. TRANXENE [Concomitant]
     Active Substance: CLORAZEPATE DIPOTASSIUM
     Indication: ANXIETY
     Dosage: UNK
     Dates: start: 20181128
  13. ZOPHREN [ONDANSETRON] [Concomitant]
     Active Substance: ONDANSETRON
     Dosage: UNK
     Dates: start: 20181019
  14. LASILIX [FUROSEMIDE] [Concomitant]
     Active Substance: FUROSEMIDE
     Dosage: UNK
     Dates: start: 20181124, end: 20181124
  15. ZELITREX [Concomitant]
     Active Substance: VALACYCLOVIR HYDROCHLORIDE
     Dosage: UNK
     Dates: start: 2017
  16. IMOVANE [Concomitant]
     Active Substance: ZOPICLONE
     Dosage: UNK
     Dates: start: 2017
  17. CYCLOPHOSPHAMIDE. [Suspect]
     Active Substance: CYCLOPHOSPHAMIDE
     Indication: BONE MARROW CONDITIONING REGIMEN
     Dosage: 900 MG/M2, ONCE (1650 MG)
     Route: 042
     Dates: start: 20181125, end: 20181125
  18. FLUDARABINE [Suspect]
     Active Substance: FLUDARABINE PHOSPHATE
     Indication: BONE MARROW CONDITIONING REGIMEN
     Dosage: 25 MG/M2, QD (141 MG)
     Route: 042
     Dates: start: 20181123, end: 20181125
  19. DOXORUBICINE [DOXORUBICIN] [Concomitant]
     Active Substance: DOXORUBICIN
     Indication: CHEMOTHERAPY
     Dosage: UNK, ONCE
     Route: 042
     Dates: start: 20181029
  20. CYTARABINE. [Concomitant]
     Active Substance: CYTARABINE
     Dosage: UNK, ONCE
     Route: 037
     Dates: start: 20181120, end: 20181120
  21. VINCRISTINE [Concomitant]
     Active Substance: VINCRISTINE
     Indication: CHEMOTHERAPY
     Dosage: DAILY EACH MONDAY DURING 2 WEEKS
     Route: 042
     Dates: start: 20181029
  22. METHYLPREDNISOLONE. [Concomitant]
     Active Substance: METHYLPREDNISOLONE
     Indication: PROPHYLAXIS
     Dosage: UNK, ONCE
     Route: 037
     Dates: start: 20181030, end: 20181030

REACTIONS (6)
  - Neutropenia [Recovered/Resolved]
  - Cytokine release syndrome [Recovered/Resolved]
  - Pyrexia [Recovered/Resolved]
  - Pyrexia [Recovered/Resolved]
  - Hypotension [Recovered/Resolved]
  - Pyrexia [Recovered/Resolved]

NARRATIVE: CASE EVENT DATE: 20181207
